FAERS Safety Report 6465536-0 (Version None)
Quarter: 2009Q4

REPORT INFORMATION
  Report Type: 
  Country: None (occurrence: None)
  Receive Date: 20091124
  Receipt Date: 20091111
  Transmission Date: 20100525
  Serious: Yes (Hospitalization)
  Sender: FDA-Public Use
  Company Number: 2009AL007318

PATIENT
  Age: 69 Year
  Sex: Male

DRUGS (5)
  1. RAMIPRIL [Suspect]
     Dosage: 5 MG;QD;PO
     Route: 048
     Dates: start: 20090219
  2. TAMSULOSIN [Concomitant]
  3. BISOPROLOL [Concomitant]
  4. VIAGRA [Concomitant]
  5. HYDROCHLOROTHIAZIDE [Concomitant]

REACTIONS (5)
  - BLOOD PRESSURE INCREASED [None]
  - DRUG INTERACTION [None]
  - FEELING ABNORMAL [None]
  - HEART RATE IRREGULAR [None]
  - PRESYNCOPE [None]
